FAERS Safety Report 9378849 (Version 3)
Quarter: 2014Q1

REPORT INFORMATION
  Report Type: Spontaneous
  Country: US (occurrence: US)
  Receive Date: 20130702
  Receipt Date: 20140127
  Transmission Date: 20141002
  Serious: No
  Sender: FDA-Public Use
  Company Number: US-PFIZER INC-2013193529

PATIENT
  Age: 44 Year
  Sex: Male
  Weight: 84.1 kg

DRUGS (3)
  1. SUTENT [Suspect]
     Indication: RENAL CANCER
     Dosage: 50 MG, 1X/DAY (4 WEEKS ON/2 WEEKS OFF)
     Route: 048
     Dates: start: 20120723
  2. SUTENT [Suspect]
     Dosage: 50 MG, DAILY ( 28 DAYS, 14 DAYS OFF)
     Route: 048
     Dates: start: 20121222
  3. SUTENT [Suspect]
     Dosage: 50 MG, DAILY
     Route: 048
     Dates: start: 20130130

REACTIONS (3)
  - Pain in extremity [Unknown]
  - Swelling face [Unknown]
  - Hair colour changes [Unknown]
